FAERS Safety Report 11982295 (Version 1)
Quarter: 2016Q1

REPORT INFORMATION
  Report Type: Spontaneous
  Country: US (occurrence: None)
  Receive Date: 20160129
  Receipt Date: 20160129
  Transmission Date: 20160526
  Serious: Yes (Other)
  Sender: FDA-Public Use
  Company Number: None

PATIENT
  Age: 21 Year
  Sex: Male
  Weight: 99.79 kg

DRUGS (2)
  1. HUMARIA [Concomitant]
  2. PREDNISONE PREDNISONE 20MG TABS [Suspect]
     Active Substance: PREDNISONE
     Indication: CROHN^S DISEASE
     Dosage: 40MG A WEEK TAPER DOWN 10MG AN  ONCE DAILY  TAKEN BY MOUTH
     Route: 048
     Dates: start: 199811, end: 2010

REACTIONS (3)
  - Tooth fracture [None]
  - Tooth disorder [None]
  - Crohn^s disease [None]
